FAERS Safety Report 13704908 (Version 1)
Quarter: 2017Q2

REPORT INFORMATION
  Report Type: Spontaneous
  Country: US (occurrence: US)
  Receive Date: 20170629
  Receipt Date: 20170629
  Transmission Date: 20170830
  Serious: Yes (Hospitalization)
  Sender: FDA-Public Use
  Company Number: None

PATIENT
  Age: 74 Year
  Sex: Female

DRUGS (1)
  1. COPAXONE [Suspect]
     Active Substance: GLATIRAMER ACETATE
     Indication: MULTIPLE SCLEROSIS
     Dosage: 1 INJECTION 3 TIMES/WEEK SQ
     Route: 058
     Dates: start: 20070101

REACTIONS (5)
  - Fall [None]
  - Hip fracture [None]
  - Tremor [None]
  - Balance disorder [None]
  - Drug dose omission [None]

NARRATIVE: CASE EVENT DATE: 20170503
